FAERS Safety Report 20210435 (Version 2)
Quarter: 2022Q2

REPORT INFORMATION
  Report Type: Spontaneous
  Country: JP (occurrence: JP)
  Receive Date: 20211221
  Receipt Date: 20220518
  Transmission Date: 20220721
  Serious: Yes (Life-Threatening)
  Sender: FDA-Public Use
  Company Number: JP-MSD-2112JPN001057J

PATIENT
  Age: 74 Year

DRUGS (19)
  1. BRIDION [Suspect]
     Active Substance: SUGAMMADEX
     Indication: Neuromuscular blockade reversal
     Dosage: 120 MILLIGRAM, QD
     Route: 042
     Dates: start: 20210730, end: 20210730
  2. ATROPINE SULFATE [Concomitant]
     Active Substance: ATROPINE SULFATE
     Dosage: 1 CYLINDER
     Route: 051
  3. NOREPINEPHRINE [Concomitant]
     Active Substance: NOREPINEPHRINE
     Dosage: ONE TUBE
     Route: 051
  4. EPINEPHRINE [Concomitant]
     Active Substance: EPINEPHRINE
     Dosage: 1 CYLINDER
     Route: 051
  5. REMIFENTANIL HYDROCHLORIDE [Concomitant]
     Active Substance: REMIFENTANIL HYDROCHLORIDE
     Dosage: 1 BOTTLE
     Route: 042
  6. PHENYLEPHRINE HYDROCHLORIDE [Concomitant]
     Active Substance: PHENYLEPHRINE HYDROCHLORIDE
     Dosage: ONE TUBE
     Route: 051
  7. ROCURONIUM BROMIDE [Concomitant]
     Active Substance: ROCURONIUM BROMIDE
     Dosage: 1V
     Route: 042
  8. FENTANYL CITRATE [Concomitant]
     Active Substance: FENTANYL CITRATE
     Dosage: ONE TUBE
     Route: 051
  9. EPHEDRINE HYDROCHLORIDE [Concomitant]
     Active Substance: EPHEDRINE HYDROCHLORIDE
     Dosage: ONE TUBE
     Route: 065
  10. CITOSOL [Concomitant]
     Active Substance: THIAMYLAL SODIUM
     Dosage: 1 BOTTLE
     Route: 051
  11. ACETAMINOPHEN [Concomitant]
     Active Substance: ACETAMINOPHEN
     Dosage: 1 BAG
     Route: 042
  12. DROPERIDOL [Concomitant]
     Active Substance: DROPERIDOL
     Dosage: 0.6 MILLILITER
     Route: 051
  13. NALOXONE HYDROCHLORIDE [Concomitant]
     Active Substance: NALOXONE HYDROCHLORIDE
     Dosage: ONE TUBE
     Route: 051
  14. CALCIUM CHLORIDE\MAGNESIUM CHLORIDE\POTASSIUM CHLORIDE\SODIUM ACETATE\ [Concomitant]
     Active Substance: CALCIUM CHLORIDE\MAGNESIUM CHLORIDE\POTASSIUM CHLORIDE\SODIUM ACETATE\SODIUM CHLORIDE
     Dosage: 2B
     Route: 051
  15. CEFAZOLIN SODIUM [Concomitant]
     Active Substance: CEFAZOLIN SODIUM
     Dosage: 1KT
     Route: 042
  16. XYLOCAINE [Concomitant]
     Active Substance: LIDOCAINE HYDROCHLORIDE
     Dosage: 20 MILLILITER
     Route: 051
  17. SOFRATULLE [NEOMYCIN SULFATE] [Concomitant]
     Dosage: 1 10 CM-SIZED SHEET
     Route: 065
  18. POVIDONE [POVIDONE-IODINE] [Concomitant]
     Dosage: 100 MILLILITER
     Route: 003
  19. EKSALB [Concomitant]
     Dosage: 5 GRAM
     Route: 065

REACTIONS (2)
  - Kounis syndrome [Not Recovered/Not Resolved]
  - Anaphylactic shock [Recovered/Resolved]

NARRATIVE: CASE EVENT DATE: 20210730
